FAERS Safety Report 10975230 (Version 1)
Quarter: 2015Q2

REPORT INFORMATION
  Report Type: Spontaneous
  Country: FR (occurrence: FR)
  Receive Date: 20150401
  Receipt Date: 20150401
  Transmission Date: 20150821
  Serious: Yes (Hospitalization)
  Sender: FDA-Public Use
  Company Number: FR-PFIZER INC-2015068678

PATIENT
  Age: 80 Year
  Sex: Female

DRUGS (9)
  1. DAFALGAN [Suspect]
     Active Substance: ACETAMINOPHEN
     Dosage: 1000 MG, 4X/DAY
     Route: 048
     Dates: start: 20141114, end: 20141211
  2. TAHOR [Suspect]
     Active Substance: ATORVASTATIN CALCIUM
     Dosage: 80 MG, 1X/DAY
     Route: 048
     Dates: start: 20141113, end: 20141213
  3. FRAGMINE [Suspect]
     Active Substance: DALTEPARIN SODIUM
     Dosage: 5000 IU, 1X/DAY
     Route: 058
     Dates: start: 20141113, end: 20141211
  4. EUPANTOL [Suspect]
     Active Substance: PANTOPRAZOLE SODIUM
     Dosage: 40 MG, 1X/DAY
     Route: 048
     Dates: start: 20141113, end: 20141211
  5. JAMYLENE (DANTHRON, DOCUSATE SODIUM) [Suspect]
     Active Substance: DANTHRON\DOCUSATE SODIUM
     Dosage: 2 DF, 2X/DAY
     Route: 048
     Dates: start: 20141205, end: 20141211
  6. AMOXICILLIN TRIHYDRATE, CLAVULANIC ACID SANDOZ [Suspect]
     Active Substance: AMOXICILLIN\CLAVULANIC ACID
     Dosage: 1 DF, 3X/DAY
     Route: 048
     Dates: start: 20141114, end: 20141124
  7. AVLOCARDYL [Concomitant]
     Active Substance: PROPRANOLOL HYDROCHLORIDE
     Dosage: 3 DF, DAILY (1 DF IN THE MORNING AND 2DF IN THE EVENING)
     Route: 048
  8. KARDEGIC [Concomitant]
     Active Substance: ASPIRIN LYSINE
     Dosage: 75 MG, 1X/DAY
     Route: 048
     Dates: start: 20141113
  9. DUPHALAC [Concomitant]
     Active Substance: LACTULOSE
     Dosage: 10 G, 1X/DAY
     Route: 048
     Dates: start: 20141201

REACTIONS (3)
  - Dysuria [Unknown]
  - Hepatitis cholestatic [Recovered/Resolved]
  - Haematuria [Unknown]

NARRATIVE: CASE EVENT DATE: 201412
